FAERS Safety Report 7782274-2 (Version None)
Quarter: 2011Q3

REPORT INFORMATION
  Report Type: 
  Country: None (occurrence: None)
  Receive Date: 20110927
  Receipt Date: 20110914
  Transmission Date: 20111222
  Serious: Yes (Hospitalization)
  Sender: FDA-Public Use
  Company Number: PT-MERCK-1008PRT00004

PATIENT
  Age: 15 Year
  Sex: Female
  Weight: 55 kg

DRUGS (7)
  1. ISENTRESS [Suspect]
     Route: 048
     Dates: start: 20101001
  2. EMTRICITABINE AND TENOFOVIR DISOPROXIL FUMARATE [Concomitant]
     Indication: HIV INFECTION
     Route: 065
     Dates: start: 20091101, end: 20100801
  3. LAMIVUDINE [Concomitant]
     Indication: HIV INFECTION
     Route: 065
     Dates: start: 20101001
  4. LOPINAVIR AND RITONAVIR [Concomitant]
     Indication: HIV INFECTION
     Route: 065
     Dates: start: 20091001, end: 20100801
  5. TENOFOVIR DISOPROXIL FUMARATE [Concomitant]
     Indication: HIV INFECTION
     Route: 065
     Dates: start: 20091001, end: 20101101
  6. DARUNAVIR AND RITONAVIR [Concomitant]
     Indication: HIV INFECTION
     Route: 065
     Dates: start: 20101001
  7. ISENTRESS [Suspect]
     Indication: HIV INFECTION
     Route: 048
     Dates: start: 20091101, end: 20100801

REACTIONS (4)
  - OFF LABEL USE [None]
  - VASCULITIS [None]
  - FEMORAL ARTERIAL STENOSIS [None]
  - PERIPHERAL ISCHAEMIA [None]
